FAERS Safety Report 7475589-9 (Version None)
Quarter: 2011Q2

REPORT INFORMATION
  Report Type: 
  Country: None (occurrence: None)
  Receive Date: 20110512
  Receipt Date: 20110428
  Transmission Date: 20111010
  Serious: No
  Sender: FDA-Public Use
  Company Number: US-B.I. PHARMACEUTICALS,INC./RIDGEFIELD-2011-BP-12062BP

PATIENT
  Sex: Female

DRUGS (11)
  1. ADVAIR HFA [Concomitant]
     Indication: ASTHMA
  2. GUAIFENESIN [Concomitant]
     Indication: ASTHMA
  3. RHINOCORT [Concomitant]
     Indication: HYPERSENSITIVITY
  4. SPIRIVA [Suspect]
     Indication: ASTHMA
     Dosage: 18 MCG
     Route: 055
     Dates: start: 20060101
  5. IPRATROPIUM NASAL SPRAY [Concomitant]
     Indication: HYPERSENSITIVITY
  6. CROMOLYN SODIUM [Concomitant]
     Indication: ASTHMA
  7. SINGULAIR [Concomitant]
     Indication: HYPERSENSITIVITY
  8. ALLERGY SHOTS [Concomitant]
     Indication: HYPERSENSITIVITY
  9. ASTEPRO [Concomitant]
     Indication: HYPERSENSITIVITY
  10. ALBUTEROL [Concomitant]
     Indication: ASTHMA
  11. ALLEGRA [Concomitant]
     Indication: HYPERSENSITIVITY

REACTIONS (4)
  - DYSURIA [None]
  - OBSESSIVE-COMPULSIVE DISORDER [None]
  - IRRITABLE BOWEL SYNDROME [None]
  - SLEEP APNOEA SYNDROME [None]
